FAERS Safety Report 7145499-5 (Version None)
Quarter: 2010Q4

REPORT INFORMATION
  Report Type: 
  Country: None (occurrence: None)
  Receive Date: 20101208
  Receipt Date: 20101203
  Transmission Date: 20110411
  Serious: Yes (Other)
  Sender: FDA-Public Use
  Company Number: FR-ROCHE-746234

PATIENT
  Age: 57 Year
  Sex: Male

DRUGS (3)
  1. GANCICLOVIR [Suspect]
     Dosage: DRUG STOPPED
     Route: 042
  2. GANCICLOVIR [Suspect]
     Dosage: ROUTE INTRAVETREAL, DOSE: UP TO 3 MG IN 0.1ML
     Route: 042
  3. ACYCLOVIR SODIUM [Concomitant]
     Route: 042

REACTIONS (1)
  - LYMPHOPENIA [None]
